FAERS Safety Report 12331731 (Version 5)
Quarter: 2017Q3

REPORT INFORMATION
  Report Type: Spontaneous
  Country: US (occurrence: US)
  Receive Date: 20160504
  Receipt Date: 20170711
  Transmission Date: 20171127
  Serious: Yes (Death, Other)
  Sender: FDA-Public Use
  Company Number: US-ROCHE-1637634

PATIENT
  Sex: Male

DRUGS (11)
  1. ESBRIET [Suspect]
     Active Substance: PIRFENIDONE
     Route: 048
     Dates: start: 20170208
  2. WARFARIN [Concomitant]
     Active Substance: WARFARIN
  3. CARDIZEM [Concomitant]
     Active Substance: DILTIAZEM HYDROCHLORIDE
  4. ALBUTEROL. [Concomitant]
     Active Substance: ALBUTEROL
  5. METHIMAZOLE. [Concomitant]
     Active Substance: METHIMAZOLE
  6. ADVAIR HFA [Concomitant]
     Active Substance: FLUTICASONE PROPIONATE\SALMETEROL XINAFOATE
  7. PREDNISONE. [Concomitant]
     Active Substance: PREDNISONE
  8. SILDENAFIL. [Concomitant]
     Active Substance: SILDENAFIL
  9. DIGOXIN. [Concomitant]
     Active Substance: DIGOXIN
  10. ESBRIET [Suspect]
     Active Substance: PIRFENIDONE
     Indication: IDIOPATHIC PULMONARY FIBROSIS
     Route: 048
     Dates: start: 20150318
  11. TORSEMIDE. [Concomitant]
     Active Substance: TORSEMIDE

REACTIONS (12)
  - Fatigue [Unknown]
  - Respiratory tract infection [Unknown]
  - Metastatic bronchial carcinoma [Fatal]
  - Memory impairment [Unknown]
  - Hyperchlorhydria [Unknown]
  - Inappropriate schedule of drug administration [Unknown]
  - Pulmonary hypertension [Unknown]
  - Weight decreased [Unknown]
  - Dyspnoea [Unknown]
  - Abdominal discomfort [Unknown]
  - Drug dose omission [Unknown]
  - Gastrooesophageal reflux disease [Unknown]
